FAERS Safety Report 22610483 (Version 1)
Quarter: 2023Q2

REPORT INFORMATION
  Report Type: Spontaneous
  Country: MY (occurrence: None)
  Receive Date: 20230616
  Receipt Date: 20230616
  Transmission Date: 20230721
  Serious: Yes (Other)
  Sender: FDA-Public Use
  Company Number: MY-ROCHE-3369262

PATIENT
  Sex: Male

DRUGS (1)
  1. TECENTRIQ [Suspect]
     Active Substance: ATEZOLIZUMAB
     Indication: Hepatocellular carcinoma
     Dosage: 60MG/ML CONCENTRATE FOR SOLUTION FOR INFUSION
     Route: 065

REACTIONS (2)
  - Tumour haemorrhage [Unknown]
  - Tumour rupture [Unknown]
